FAERS Safety Report 4518901-2 (Version None)
Quarter: 2004Q4

REPORT INFORMATION
  Report Type: 
  Country: None (occurrence: None)
  Receive Date: 20041201
  Receipt Date: 20041122
  Transmission Date: 20050328
  Serious: Yes (Hospitalization, Other)
  Sender: FDA-Public Use
  Company Number: 2004US001449

PATIENT
  Age: 15 Year
  Sex: Female

DRUGS (2)
  1. PROGRAF [Suspect]
     Indication: PROPHYLAXIS AGAINST TRANSPLANT REJECTION
  2. PREDNISONE [Suspect]
     Indication: PROPHYLAXIS AGAINST TRANSPLANT REJECTION

REACTIONS (7)
  - COLITIS ULCERATIVE [None]
  - COMPLICATIONS OF TRANSPLANTED LIVER [None]
  - EPSTEIN-BARR VIRUS INFECTION [None]
  - LIVER TRANSPLANT REJECTION [None]
  - LYMPHOPROLIFERATIVE DISORDER [None]
  - PANCREATITIS [None]
  - PERIPHERAL T-CELL LYMPHOMA UNSPECIFIED [None]
